FAERS Safety Report 23396148 (Version 2)
Quarter: 2024Q1

REPORT INFORMATION
  Report Type: Other
  Country: DE (occurrence: None)
  Receive Date: 20240112
  Receipt Date: 20240130
  Transmission Date: 20240410
  Serious: No
  Sender: FDA-Public Use
  Company Number: DE-AMGEN-DEUSP2023233776

PATIENT
  Sex: Female

DRUGS (9)
  1. BEVACIZUMAB [Suspect]
     Active Substance: BEVACIZUMAB
     Indication: Ovarian cancer
     Dosage: UNK
     Route: 065
  2. PACLITAXEL [Suspect]
     Active Substance: PACLITAXEL
     Indication: Ovarian cancer
     Route: 065
  3. CARBOPLATIN [Suspect]
     Active Substance: CARBOPLATIN
     Indication: Ovarian cancer
     Route: 065
  4. OLAPARIB [Concomitant]
     Active Substance: OLAPARIB
  5. CHOLECALCIFEROL [Concomitant]
     Active Substance: CHOLECALCIFEROL
  6. SODIUM SELENITE [Concomitant]
     Active Substance: SODIUM SELENITE
  7. LEVOCARNITINE [Concomitant]
     Active Substance: LEVOCARNITINE
  8. ALPHA LIPOIC ACID [Concomitant]
     Active Substance: .ALPHA.-LIPOIC ACID
     Dosage: 600 MG SHORT INFUSION 3 X WEEKLY/45 MIN
  9. COLIBIOGEN [Concomitant]
     Dosage: 2 X 1 TEASPOON DAILY

REACTIONS (2)
  - Neurotoxicity [Recovering/Resolving]
  - Paraesthesia [Recovering/Resolving]
